FAERS Safety Report 6198546-1 (Version None)
Quarter: 2009Q2

REPORT INFORMATION
  Report Type: 
  Country: None (occurrence: None)
  Receive Date: 20090521
  Receipt Date: 20090114
  Transmission Date: 20091009
  Serious: Yes (Other)
  Sender: FDA-Public Use
  Company Number: US-PFIZER INC-2009153585

PATIENT
  Sex: Female

DRUGS (1)
  1. LYRICA [Suspect]
     Indication: FIBROMYALGIA
     Dosage: 75 MG, 2X/DAY

REACTIONS (9)
  - BLOOD CHOLESTEROL INCREASED [None]
  - CENTRAL NERVOUS SYSTEM LESION [None]
  - DISTURBANCE IN ATTENTION [None]
  - DRY MOUTH [None]
  - INTRAOCULAR PRESSURE INCREASED [None]
  - LIP SWELLING [None]
  - OEDEMA PERIPHERAL [None]
  - TRANSIENT ISCHAEMIC ATTACK [None]
  - VISION BLURRED [None]
